FAERS Safety Report 9050695 (Version 1)
Quarter: 2013Q1

REPORT INFORMATION
  Report Type: Other
  Country: GB (occurrence: GB)
  Receive Date: 20130205
  Receipt Date: 20130205
  Transmission Date: 20140127
  Serious: Yes (Hospitalization, Other)
  Sender: FDA-Public Use
  Company Number: GB-WATSON-2013-01667

PATIENT
  Sex: Female

DRUGS (2)
  1. IBUPROFEN (UNKNOWN) [Suspect]
     Indication: PRODUCT USED FOR UNKNOWN INDICATION
     Dosage: 400 MG, BID
     Route: 065
  2. ACYCLOVIR (UNKNOWN) [Suspect]
     Indication: HERPES ZOSTER
     Dosage: 800 MG, DAILY
     Route: 048
     Dates: start: 20121212, end: 20121212

REACTIONS (1)
  - Rectal haemorrhage [Recovered/Resolved]
